FAERS Safety Report 6827655-6 (Version None)
Quarter: 2010Q3

REPORT INFORMATION
  Report Type: 
  Country: None (occurrence: None)
  Receive Date: 20100709
  Receipt Date: 20070122
  Transmission Date: 20110219
  Serious: No
  Sender: FDA-Public Use
  Company Number: US-PFIZER INC-2007006944

PATIENT
  Sex: Female
  Weight: 108.86 kg

DRUGS (4)
  1. CHANTIX [Suspect]
     Indication: SMOKING CESSATION THERAPY
     Dates: start: 20070101, end: 20070120
  2. BENAZEPRIL HYDROCHLORIDE [Concomitant]
     Indication: HYPERTENSION
  3. QUININE [Concomitant]
     Indication: MUSCLE SPASMS
  4. GLUCOSAMINE W/CHONDROITIN SULFATES [Concomitant]
     Indication: CHONDROPATHY

REACTIONS (2)
  - PRURITUS [None]
  - RASH [None]
